FAERS Safety Report 19020791 (Version 3)
Quarter: 2021Q1

REPORT INFORMATION
  Report Type: Other
  Country: US (occurrence: US)
  Receive Date: 20210317
  Receipt Date: 20210331
  Transmission Date: 20210420
  Serious: Yes (Hospitalization)
  Sender: FDA-Public Use
  Company Number: US-MISSION PHARMACAL COMPANY-2108109

PATIENT
  Age: 32 Year
  Sex: Female

DRUGS (2)
  1. HYDROXYZINE [Concomitant]
     Active Substance: HYDROXYZINE HYDROCHLORIDE
  2. THIOLA EC [Suspect]
     Active Substance: TIOPRONIN
     Indication: CYSTINURIA
     Route: 048
     Dates: start: 20191123

REACTIONS (7)
  - Drug ineffective [Unknown]
  - Pyrexia [Unknown]
  - Blood urine present [Unknown]
  - Haemorrhage urinary tract [Unknown]
  - Infection [Unknown]
  - Urticaria [Unknown]
  - Renal cyst [Unknown]
